FAERS Safety Report 16162630 (Version 1)
Quarter: 2019Q2

REPORT INFORMATION
  Report Type: Spontaneous
  Country: US (occurrence: US)
  Receive Date: 20190302
  Receipt Date: 20190302
  Transmission Date: 20190711
  Serious: Yes (Death, Hospitalization)
  Sender: FDA-Public Use
  Company Number: None

PATIENT
  Age: 3 Year
  Sex: Male
  Weight: 14.6 kg

DRUGS (6)
  1. DAUNORUBICIN [Suspect]
     Active Substance: DAUNORUBICIN
     Dates: end: 20190201
  2. DEXAMETHASONE. [Suspect]
     Active Substance: DEXAMETHASONE
     Dates: end: 20190207
  3. METHOTREXATE. [Suspect]
     Active Substance: METHOTREXATE
     Dates: end: 20190201
  4. VINCRISTINE SULFATE. [Suspect]
     Active Substance: VINCRISTINE SULFATE
     Dates: end: 20190201
  5. ONCASPAR [Suspect]
     Active Substance: PEGASPARGASE
     Dates: end: 20190128
  6. CYTARABINE. [Suspect]
     Active Substance: CYTARABINE
     Dates: end: 20190125

REACTIONS (11)
  - Intraventricular haemorrhage [None]
  - Pseudomonal sepsis [None]
  - White blood cell count decreased [None]
  - Symptom recurrence [None]
  - Neutrophil count decreased [None]
  - Intussusception [None]
  - Brain injury [None]
  - Subarachnoid haemorrhage [None]
  - Respiratory distress [None]
  - Cardiac arrest [None]
  - Platelet count decreased [None]

NARRATIVE: CASE EVENT DATE: 20190207
